FAERS Safety Report 14846966 (Version 1)
Quarter: 2018Q2

REPORT INFORMATION
  Report Type: Spontaneous
  Country: US (occurrence: US)
  Receive Date: 20180419
  Receipt Date: 20180419
  Transmission Date: 20180711
  Serious: Yes (Hospitalization)
  Sender: FDA-Public Use
  Company Number: None

PATIENT
  Age: 83 Year
  Sex: Male

DRUGS (9)
  1. BACLOFEN 10MG [Concomitant]
     Active Substance: BACLOFEN
  2. METOPROLOL SUCCINATE 25MG ER [Concomitant]
  3. REBIF [Suspect]
     Active Substance: INTERFERON BETA-1A
     Indication: MULTIPLE SCLEROSIS
     Route: 058
     Dates: start: 20151203
  4. DIAZEPAM 2MG [Concomitant]
     Active Substance: DIAZEPAM
  5. FLOVENT 100MCG [Concomitant]
  6. MECLIZINE 25MG [Concomitant]
  7. PROAIR HFA [Concomitant]
     Active Substance: ALBUTEROL SULFATE
  8. LOSARTAN 50MG [Concomitant]
     Active Substance: LOSARTAN
  9. LEVOTHYROXINE 75MCG [Concomitant]
     Active Substance: LEVOTHYROXINE

REACTIONS (2)
  - Vertigo [None]
  - Fall [None]

NARRATIVE: CASE EVENT DATE: 20180418
